FAERS Safety Report 5316766-2 (Version None)
Quarter: 2007Q2

REPORT INFORMATION
  Report Type: 
  Country: None (occurrence: None)
  Receive Date: 20070504
  Receipt Date: 20070424
  Transmission Date: 20071010
  Serious: Yes (Hospitalization, Other)
  Sender: FDA-Public Use
  Company Number: IE-ABBOTT-07P-229-0366066-00

PATIENT

DRUGS (1)
  1. CYCLOSPORINE [Suspect]
     Indication: TRANSPLANT
     Dosage: NOT REPORTED

REACTIONS (2)
  - DRUG TOXICITY [None]
  - RENAL FAILURE [None]
